FAERS Safety Report 4313916-1 (Version None)
Quarter: 2004Q1

REPORT INFORMATION
  Report Type: 
  Country: None (occurrence: None)
  Receive Date: 20040305
  Receipt Date: 20040218
  Transmission Date: 20041129
  Serious: Yes (Hospitalization)
  Sender: FDA-Public Use
  Company Number: 7513

PATIENT
  Age: 40 Year
  Sex: Female

DRUGS (3)
  1. METHOTREXATE [Suspect]
     Indication: PROPHYLAXIS AGAINST TRANSPLANT REJECTION
     Dates: start: 20011001, end: 20010101
  2. UNSPECIFIED NARCOTIC [Suspect]
     Dates: start: 20011001
  3. CYCLOSPORINE [Concomitant]

REACTIONS (14)
  - ATROPHY [None]
  - CONDITION AGGRAVATED [None]
  - CONSTIPATION [None]
  - GASTROINTESTINAL INJURY [None]
  - GASTROINTESTINAL MOTILITY DISORDER [None]
  - LUNG CONSOLIDATION [None]
  - MUCOSAL INFLAMMATION [None]
  - MUCOUS MEMBRANE DISORDER [None]
  - OESOPHAGEAL CANDIDIASIS [None]
  - OESOPHAGEAL DILATATION [None]
  - OESOPHAGEAL PERFORATION [None]
  - OESOPHAGEAL RUPTURE [None]
  - PLEURAL EFFUSION [None]
  - PYREXIA [None]
